FAERS Safety Report 6012362-2 (Version None)
Quarter: 2008Q4

REPORT INFORMATION
  Report Type: 
  Country: None (occurrence: None)
  Receive Date: 20081218
  Receipt Date: 20080910
  Transmission Date: 20090506
  Serious: No
  Sender: FDA-Public Use
  Company Number: US-ASTRAZENECA-2008UW18792

PATIENT
  Age: 73 Year
  Sex: Female

DRUGS (9)
  1. SYMBICORT [Suspect]
     Indication: ASTHMA
     Dosage: 160/4.5 TWO PUFFS TWICE DAILY
     Route: 055
     Dates: start: 20080801
  2. SPIRIVA [Concomitant]
  3. LISINOPRIL [Concomitant]
  4. ASPIRIN [Concomitant]
  5. LOPRESSOR [Concomitant]
  6. CIMETIDINE [Concomitant]
  7. FLONASE [Concomitant]
  8. PLAVIX [Concomitant]
  9. CLOTRIMAZOLE [Concomitant]

REACTIONS (2)
  - ORAL CANDIDIASIS [None]
  - THROAT IRRITATION [None]
